FAERS Safety Report 5319936-2 (Version None)
Quarter: 2007Q2

REPORT INFORMATION
  Report Type: 
  Country: None (occurrence: None)
  Receive Date: 20070502
  Receipt Date: 20070418
  Transmission Date: 20071010
  Serious: Yes (Death)
  Sender: FDA-Public Use
  Company Number: 2007P1000154

PATIENT
  Age: 10 Year
  Sex: Female

DRUGS (5)
  1. NICARDIPINE HYDROCHLORIDE [Suspect]
     Indication: DRUG USE FOR UNKNOWN INDICATION
     Dosage: 10 MG/ML; IV
     Route: 042
     Dates: end: 20070310
  2. DANTROLENE SODIUM [Suspect]
     Indication: HYPERTHERMIA MALIGNANT
     Dosage: 40 MG; IV
     Route: 042
     Dates: start: 20070310, end: 20070310
  3. DOPAMINE HCL [Concomitant]
  4. PRECEDEX [Concomitant]
  5. DIPRIVAN [Concomitant]

REACTIONS (10)
  - ARRHYTHMIA [None]
  - BRAIN MALFORMATION [None]
  - C-REACTIVE PROTEIN INCREASED [None]
  - CARDIAC FAILURE [None]
  - CEREBRAL HAEMORRHAGE [None]
  - ELECTROCARDIOGRAM ABNORMAL [None]
  - HYPERTHERMIA MALIGNANT [None]
  - MYOGLOBINURIA [None]
  - NERVOUS SYSTEM DISORDER [None]
  - NEUROLEPTIC MALIGNANT SYNDROME [None]
